FAERS Safety Report 4698006-0 (Version None)
Quarter: 2005Q2

REPORT INFORMATION
  Report Type: 
  Country: None (occurrence: None)
  Receive Date: 20050620
  Receipt Date: 20050610
  Transmission Date: 20051028
  Serious: Yes (Hospitalization)
  Sender: FDA-Public Use
  Company Number: 6015402

PATIENT
  Age: 82 Year
  Sex: Male

DRUGS (4)
  1. DETENSIEL (TABLET) (BISOPROLOL FUMARATE) [Suspect]
     Dosage: 10,000 MG (10 MG, 1 IN 1 D) ORAL
     Route: 048
  2. ALDACTONE [Suspect]
     Indication: CARDIAC FAILURE
     Dosage: ORAL
     Route: 048
     Dates: end: 20050401
  3. ZESTRIL [Suspect]
     Dosage: 20,000 MG (20 MG, 1 IN 1 D) ORAL
     Route: 048
  4. LASIX [Suspect]
     Indication: CARDIAC FAILURE
     Dosage: (1 IN 1 D) ORAL
     Route: 048
     Dates: end: 20050401

REACTIONS (3)
  - ATRIOVENTRICULAR BLOCK [None]
  - HYPERKALAEMIA [None]
  - RENAL FAILURE ACUTE [None]
